FAERS Safety Report 23161374 (Version 2)
Quarter: 2023Q4

REPORT INFORMATION
  Report Type: Spontaneous
  Country: FR (occurrence: FR)
  Receive Date: 20231108
  Receipt Date: 20231115
  Transmission Date: 20240110
  Serious: Yes (Death)
  Sender: FDA-Public Use
  Company Number: FR-SA-SAC20230920000924

PATIENT
  Age: 49 Year
  Sex: Male
  Weight: 60 kg

DRUGS (8)
  1. LORAZEPAM [Suspect]
     Active Substance: LORAZEPAM
     Indication: Product used for unknown indication
     Dosage: 1 DF, HS
     Route: 065
  2. OLIPUDASE ALFA [Suspect]
     Active Substance: OLIPUDASE ALFA
     Indication: Niemann-Pick disease
     Dosage: 3 MG/KG, QOW
     Route: 042
     Dates: start: 20210907, end: 20230418
  3. OLIPUDASE ALFA [Suspect]
     Active Substance: OLIPUDASE ALFA
     Dosage: 0.1 MG/KG, QOW
     Route: 042
     Dates: start: 20230905, end: 20230905
  4. ZOPICLONE [Suspect]
     Active Substance: ZOPICLONE
     Indication: Product used for unknown indication
     Dosage: 1 DF, HS; STRENGTH: 7.5MG
     Route: 065
  5. BROMAZEPAM [Suspect]
     Active Substance: BROMAZEPAM
     Indication: Product used for unknown indication
     Dosage: 2 DF, HS
     Route: 065
  6. NOVORAPID [Concomitant]
     Active Substance: INSULIN ASPART
     Indication: Type 1 diabetes mellitus
     Dosage: 6 U, TID (RECENT DOSE INCREASE)
     Route: 065
     Dates: start: 2020, end: 20230905
  7. INSULIN GLARGINE [Concomitant]
     Active Substance: INSULIN GLARGINE
     Indication: Type 1 diabetes mellitus
     Dosage: 22 U, BID (RECENT DOSE INCREASE)
     Route: 065
     Dates: start: 2020, end: 20230905
  8. RISPERIDONE [Concomitant]
     Active Substance: RISPERIDONE
     Indication: Psychotic disorder
     Dosage: 4 MG, HS (AT BEDTIME) START DATE: FOR MANY YEARS
     Route: 065
     Dates: end: 20230905

REACTIONS (1)
  - Toxicity to various agents [Fatal]

NARRATIVE: CASE EVENT DATE: 20230907
